FAERS Safety Report 13694156 (Version 5)
Quarter: 2018Q3

REPORT INFORMATION
  Report Type: Spontaneous
  Country: JP (occurrence: JP)
  Receive Date: 20170627
  Receipt Date: 20180821
  Transmission Date: 20181010
  Serious: Yes (Life-Threatening, Hospitalization, Other)
  Sender: FDA-Public Use
  Company Number: PHHY2017JP088166

PATIENT
  Age: 75 Year
  Sex: Female

DRUGS (2)
  1. METHOTREXATE. [Suspect]
     Active Substance: METHOTREXATE
     Indication: RHEUMATOID ARTHRITIS
     Dosage: 6 MG, QW
     Route: 065
  2. PREDNISOLONE. [Suspect]
     Active Substance: PREDNISOLONE
     Indication: RHEUMATOID ARTHRITIS
     Dosage: 8 MG, QD
     Route: 065

REACTIONS (8)
  - Viral vasculitis [Not Recovered/Not Resolved]
  - Altered state of consciousness [Recovering/Resolving]
  - Malaise [Unknown]
  - Eye movement disorder [Unknown]
  - Epstein-Barr virus infection [Not Recovered/Not Resolved]
  - Vasculitis cerebral [Not Recovered/Not Resolved]
  - Necrosis [Unknown]
  - Encephalopathy [Not Recovered/Not Resolved]
